FAERS Safety Report 5956188-4 (Version None)
Quarter: 2008Q4

REPORT INFORMATION
  Report Type: 
  Country: None (occurrence: None)
  Receive Date: 20081112
  Receipt Date: 20081029
  Transmission Date: 20090506
  Serious: Yes (Death)
  Sender: FDA-Public Use
  Company Number: 2008S1000581

PATIENT
  Age: 19 Year
  Sex: Male

DRUGS (1)
  1. ROXICODONE [Suspect]
     Dosage: PO
     Route: 048
     Dates: start: 20080715, end: 20080715

REACTIONS (1)
  - DRUG TOXICITY [None]
